FAERS Safety Report 8426278-5 (Version None)
Quarter: 2012Q2

REPORT INFORMATION
  Report Type: 
  Country: None (occurrence: None)
  Receive Date: 20120611
  Receipt Date: 20120601
  Transmission Date: 20120825
  Serious: Yes (Other)
  Sender: FDA-Public Use
  Company Number: FR-SANOFI-AVENTIS-2012SA039437

PATIENT

DRUGS (1)
  1. TAXOTERE [Suspect]
     Route: 051

REACTIONS (1)
  - SHOCK [None]
